FAERS Safety Report 8530825 (Version 3)
Quarter: 2012Q4

REPORT INFORMATION
  Report Type: Report from Study
  Country: US (occurrence: None)
  Receive Date: 20120418
  Receipt Date: 20120817
  Transmission Date: 20130627
  Serious: Yes (Hospitalization)
  Sender: FDA-Public Use
  Company Number: 2012PROUSA01241

PATIENT
  Age: 77 Year
  Sex: Male
  Weight: 113.4 kg

DRUGS (8)
  1. PROVENGE [Suspect]
     Indication: PROSTATE CANCER METASTATIC
     Dosage: 250 ML, SINGLE
     Dates: start: 20120330, end: 20120330
  2. CHLORHEXIDINE GLUCONATE [Concomitant]
  3. CITALOPRAM HYDROBROMIDE [Concomitant]
  4. LORTAB [Concomitant]
  5. MULTIVITAMIN /00097801/ (ASCORBIC ACID, CALCIUM PANTOTHENATE, ERGOCALCIFEROL, NICOTINAMIDE, PYRIDOXI [Concomitant]
  6. PREDNISONE [Concomitant]
  7. RANITIDINE HYDROCHLORIDE [Concomitant]
  8. ABIRATERONE (ABIRATERONE) [Concomitant]

REACTIONS (9)
  - FALL [None]
  - HIP FRACTURE [None]
  - WOUND [None]
  - URINARY TRACT INFECTION [None]
  - ATELECTASIS [None]
  - PLEURAL EFFUSION [None]
  - LUNG NEOPLASM [None]
  - PROSTATE CANCER METASTATIC [None]
  - Neoplasm progression [None]
